FAERS Safety Report 8597833-7 (Version None)
Quarter: 2012Q3

REPORT INFORMATION
  Report Type: 
  Country: None (occurrence: None)
  Receive Date: 20120816
  Receipt Date: 20120810
  Transmission Date: 20120928
  Serious: Yes (Death, Life-Threatening, Hospitalization)
  Sender: FDA-Public Use
  Company Number: NL-GENZYME-CLOF-1001136

PATIENT
  Sex: Female
  Weight: 7.4 kg

DRUGS (36)
  1. ITRACONAZOLE [Concomitant]
     Indication: PROPHYLAXIS
     Dosage: 30 MGR, OD
     Route: 042
     Dates: start: 20100802, end: 20100810
  2. VANCOMYCIN [Concomitant]
  3. DEXAMETHASONE [Concomitant]
     Indication: GASTROINTESTINAL DISORDER
     Dosage: 1 MGR, TID
     Route: 042
     Dates: start: 20100725, end: 20100727
  4. PREDNISOLONE [Suspect]
     Indication: CHEMOTHERAPY
  5. FILGRASTIM [Concomitant]
     Indication: PROPHYLAXIS
     Dosage: 40 MCG, OD
     Route: 058
     Dates: start: 20100806, end: 20100815
  6. TEICOPLANIN [Concomitant]
     Indication: FEBRILE NEUTROPENIA
     Dosage: 70 MGR,BID
     Route: 042
     Dates: start: 20100805, end: 20100806
  7. CYTARABINE [Suspect]
     Indication: ACUTE LYMPHOCYTIC LEUKAEMIA
     Dosage: 15 MG, OD
     Route: 037
     Dates: start: 20100728, end: 20100728
  8. CIPROFLOXACIN HCL [Concomitant]
     Indication: PROPHYLAXIS
     Dosage: 100 MG, BID
     Route: 048
  9. CIPROFLOXACIN HCL [Concomitant]
     Dosage: 75 MGR, BID
     Route: 048
     Dates: start: 20100208, end: 20100802
  10. TRAMADOL HCL [Concomitant]
     Indication: PAIN
     Dosage: 10 MGR, OD
     Route: 042
     Dates: start: 20100802, end: 20100803
  11. VANCOMYCIN [Concomitant]
     Dosage: 150 MGR, TID
     Route: 042
     Dates: start: 20100802, end: 20100804
  12. CLOFARABINE [Suspect]
     Indication: ACUTE LYMPHOCYTIC LEUKAEMIA
     Dosage: 11 MG (40 MG/M2), QDX5
     Route: 042
     Dates: start: 20100723, end: 20100727
  13. METHOTREXATE [Suspect]
     Indication: ACUTE LYMPHOCYTIC LEUKAEMIA
  14. PREDNISOLONE [Suspect]
     Indication: ACUTE LYMPHOCYTIC LEUKAEMIA
     Dosage: 6 MGR, OD
     Route: 039
     Dates: start: 20100728, end: 20100728
  15. CEFTAZIDIME [Concomitant]
     Indication: FEBRILE NEUTROPENIA
     Dosage: 360 MGR, UNK
     Route: 042
     Dates: start: 20100802, end: 20100809
  16. ZOFRAN [Concomitant]
     Indication: PRODUCT USED FOR UNKNOWN INDICATION
     Dosage: 2 MG, BID
     Route: 048
  17. VANCOMYCIN [Concomitant]
     Dosage: 140 MGR, QID
     Route: 042
     Dates: start: 20100727, end: 20100801
  18. FUROSEMIDE [Concomitant]
     Indication: ELECTROLYTE IMBALANCE
     Dosage: 4 MGR, OD
     Route: 042
     Dates: start: 20100803, end: 20100805
  19. COTRIM [Concomitant]
     Indication: PROPHYLAXIS
     Dosage: 144 MGR, 3X/W
     Route: 042
     Dates: start: 20100804, end: 20100807
  20. VANCOMYCIN [Concomitant]
     Indication: FEBRILE NEUTROPENIA
     Dosage: 115 MGR, QID
     Route: 042
     Dates: start: 20100804, end: 20100805
  21. VITAMIN K TAB [Concomitant]
     Indication: PROTHROMBIN TIME PROLONGED
     Dosage: 5 MGR, OD
     Route: 042
     Dates: start: 20100804, end: 20100806
  22. CYCLOPHOSPHAMIDE [Suspect]
     Indication: ACUTE LYMPHOCYTIC LEUKAEMIA
     Dosage: 80 MG, QD
     Route: 065
     Dates: start: 20100723, end: 20100727
  23. COTRIM [Concomitant]
     Indication: PROPHYLAXIS
     Dosage: 144 MGR, 3X/W
     Route: 048
     Dates: start: 20100705, end: 20100804
  24. ITRACONAZOLE [Concomitant]
     Dosage: 30 MGR, OD
     Route: 048
     Dates: start: 20100412, end: 20100802
  25. VANCOMYCIN [Concomitant]
     Indication: PYREXIA
     Dosage: 130 MGR, TID
     Route: 042
     Dates: start: 20100722, end: 20100725
  26. VANCOMYCIN [Concomitant]
     Indication: BLOOD CULTURE POSITIVE
     Dosage: 100 MGR, UNK
     Route: 042
     Dates: start: 20100725, end: 20100727
  27. OMEPRAZOLE [Concomitant]
     Indication: HAEMATEMESIS
     Dosage: 5 MGR, OD
     Route: 042
     Dates: start: 20100730, end: 20100801
  28. ACETAMINOPHEN [Concomitant]
     Indication: PAIN
     Dosage: 55 MGR, QID
     Route: 042
     Dates: start: 20100802, end: 20100809
  29. CIPROFLOXACIN [Concomitant]
     Indication: PROPHYLAXIS
     Dosage: 77 MGR, BID
     Route: 042
     Dates: start: 20100802, end: 20100802
  30. METHOTREXATE [Suspect]
     Indication: CHEMOTHERAPY
     Dosage: 6 MGR, OD
     Route: 037
     Dates: start: 20100728, end: 20100728
  31. CYTARABINE [Suspect]
     Indication: CHEMOTHERAPY
  32. FUROSEMIDE [Concomitant]
     Indication: FLUID IMBALANCE
     Dosage: 7 MGR, OD
     Route: 042
     Dates: start: 20100805, end: 20100807
  33. ETOPOSIDE [Suspect]
     Indication: ACUTE LYMPHOCYTIC LEUKAEMIA
     Dosage: 28 MG, QD
     Route: 065
     Dates: start: 20100723, end: 20100727
  34. CEFTAZIDIME [Concomitant]
     Indication: PYREXIA
     Dosage: 340 MGR, TID
     Route: 042
     Dates: start: 20100722, end: 20100724
  35. FUROSEMIDE [Concomitant]
     Indication: DIURETIC THERAPY
     Dosage: 3.5 MGR, ONCE
     Route: 042
     Dates: start: 20100727, end: 20100727
  36. OMEPRAZOLE [Concomitant]
     Dosage: 10 MGR, OD
     Route: 042
     Dates: start: 20100802, end: 20100807

REACTIONS (5)
  - HEPATIC FUNCTION ABNORMAL [None]
  - RESPIRATORY FAILURE [None]
  - DISEASE PROGRESSION [None]
  - ASCITES [None]
  - CAPILLARY LEAK SYNDROME [None]
